FAERS Safety Report 25132588 (Version 1)
Quarter: 2025Q1

REPORT INFORMATION
  Report Type: Spontaneous
  Country: IT (occurrence: IT)
  Receive Date: 20250328
  Receipt Date: 20250328
  Transmission Date: 20250409
  Serious: Yes (Hospitalization)
  Sender: ORGANON
  Company Number: None

PATIENT
  Age: 53 Year
  Sex: Male

DRUGS (6)
  1. SIMVASTATIN [Suspect]
     Active Substance: SIMVASTATIN
     Indication: Suicide attempt
     Route: 048
     Dates: start: 20250312, end: 20250312
  2. SIMVASTATIN [Suspect]
     Active Substance: SIMVASTATIN
     Indication: Intentional overdose
  3. RAMIPRIL [Suspect]
     Active Substance: RAMIPRIL
     Indication: Suicide attempt
     Route: 048
     Dates: start: 20250312, end: 20250312
  4. RAMIPRIL [Suspect]
     Active Substance: RAMIPRIL
     Indication: Intentional overdose
  5. DUTASTERIDE [Suspect]
     Active Substance: DUTASTERIDE
     Indication: Intentional overdose
     Route: 048
     Dates: start: 20250312, end: 20250312
  6. DUTASTERIDE [Suspect]
     Active Substance: DUTASTERIDE
     Indication: Suicide attempt

REACTIONS (5)
  - Hypotension [Not Recovered/Not Resolved]
  - Oliguria [Not Recovered/Not Resolved]
  - Anuria [Not Recovered/Not Resolved]
  - Drug abuse [Not Recovered/Not Resolved]
  - Suicide attempt [Not Recovered/Not Resolved]

NARRATIVE: CASE EVENT DATE: 20250312
